FAERS Safety Report 14123997 (Version 2)
Quarter: 2017Q4

REPORT INFORMATION
  Report Type: Spontaneous
  Country: US (occurrence: US)
  Receive Date: 20171025
  Receipt Date: 20171101
  Transmission Date: 20180321
  Serious: Yes (Death, Other)
  Sender: FDA-Public Use
  Company Number: US-PFIZER INC-2017457944

PATIENT
  Age: 14 Year
  Sex: Male

DRUGS (1)
  1. DEXTROMETHORPHAN HYDROBROMIDE. [Suspect]
     Active Substance: DEXTROMETHORPHAN HYDROBROMIDE
     Dosage: UNK

REACTIONS (2)
  - Altered visual depth perception [Unknown]
  - Drug abuse [Unknown]

NARRATIVE: CASE EVENT DATE: 2003
